FAERS Safety Report 5381294-5 (Version None)
Quarter: 2007Q3

REPORT INFORMATION
  Report Type: 
  Country: None (occurrence: None)
  Receive Date: 20070705
  Receipt Date: 20070503
  Transmission Date: 20080115
  Serious: Yes (Hospitalization)
  Sender: FDA-Public Use
  Company Number: 2007028295

PATIENT
  Age: 21 Year
  Sex: Female
  Weight: 73.5 kg

DRUGS (3)
  1. ZMAX [Suspect]
     Indication: SINUSITIS
     Dosage: (2 GRAM, 1 IN 1 D), ORAL
     Route: 048
     Dates: start: 20070323, end: 20070323
  2. ZMAX [Suspect]
     Indication: TONSILLITIS
     Dosage: (2 GRAM, 1 IN 1 D), ORAL
     Route: 048
     Dates: start: 20070323, end: 20070323
  3. YASMIN [Concomitant]

REACTIONS (8)
  - ABDOMINAL PAIN UPPER [None]
  - DIARRHOEA [None]
  - HEART RATE INCREASED [None]
  - HYPERSENSITIVITY [None]
  - HYPOTENSION [None]
  - NAUSEA [None]
  - PALPITATIONS [None]
  - VOMITING [None]
